FAERS Safety Report 24827642 (Version 2)
Quarter: 2025Q1

REPORT INFORMATION
  Report Type: Spontaneous
  Country: AU (occurrence: AU)
  Receive Date: 20250109
  Receipt Date: 20250114
  Transmission Date: 20250408
  Serious: Yes (Life-Threatening, Hospitalization, Other)
  Sender: AMERICAN REGENT
  Company Number: AU-AMERICAN REGENT INC-2025000086

PATIENT
  Age: 76 Year
  Sex: Male

DRUGS (3)
  1. FERINJECT [Suspect]
     Active Substance: FERRIC CARBOXYMALTOSE
     Indication: Product used for unknown indication
     Route: 065
  2. DENOSUMAB [Suspect]
     Active Substance: DENOSUMAB
     Indication: Product used for unknown indication
     Route: 065
  3. IRON POLYMALTOSE [Suspect]
     Active Substance: IRON POLYMALTOSE
     Indication: Product used for unknown indication
     Route: 065

REACTIONS (6)
  - Hypocalcaemia [Recovered/Resolved]
  - Electrocardiogram QT prolonged [Unknown]
  - Respiratory distress [Unknown]
  - Hypophosphataemia [Recovered/Resolved]
  - Lethargy [Unknown]
  - Chest discomfort [Unknown]
